FAERS Safety Report 12617215 (Version 2)
Quarter: 2016Q4

REPORT INFORMATION
  Report Type: Spontaneous
  Country: US (occurrence: US)
  Receive Date: 20160803
  Receipt Date: 20161008
  Transmission Date: 20170207
  Serious: No
  Sender: FDA-Public Use
  Company Number: US-BRISTOL-MYERS SQUIBB COMPANY-BMS-2016-058517

PATIENT
  Sex: Male
  Weight: 99.77 kg

DRUGS (1)
  1. OPDIVO [Suspect]
     Active Substance: NIVOLUMAB
     Indication: HODGKIN^S DISEASE
     Dosage: UNK UNK, Q2WK
     Route: 065

REACTIONS (7)
  - Sexual dysfunction [Unknown]
  - Nocturia [Unknown]
  - Arthralgia [Unknown]
  - Muscle disorder [Unknown]
  - Irritability [Unknown]
  - Memory impairment [Unknown]
  - Product use issue [Unknown]
